FAERS Safety Report 19933071 (Version 2)
Quarter: 2021Q4

REPORT INFORMATION
  Report Type: Spontaneous
  Country: FR (occurrence: FR)
  Receive Date: 20211008
  Receipt Date: 20211105
  Transmission Date: 20220303
  Serious: Yes (Other)
  Sender: FDA-Public Use
  Company Number: FR-BAYER-2021A224057

PATIENT
  Age: 13 Year
  Sex: Male

DRUGS (1)
  1. PRAZIQUANTEL [Suspect]
     Active Substance: PRAZIQUANTEL
     Indication: Taeniasis

REACTIONS (3)
  - Pathogen resistance [None]
  - Drug ineffective for unapproved indication [None]
  - Off label use [None]
